FAERS Safety Report 17284789 (Version 2)
Quarter: 2020Q1

REPORT INFORMATION
  Report Type: Report from Study
  Country: None (occurrence: US)
  Receive Date: 20200117
  Receipt Date: 20200203
  Transmission Date: 20200409
  Serious: Yes (Other)
  Sender: FDA-Public Use
  Company Number: US-ABBVIE-20K-163-3237695-00

PATIENT

DRUGS (1)
  1. IMBRUVICA [Suspect]
     Active Substance: IBRUTINIB
     Indication: MARGINAL ZONE LYMPHOMA
     Route: 065

REACTIONS (12)
  - Pneumonia [Unknown]
  - Upper respiratory tract infection [Unknown]
  - Thyroiditis [Unknown]
  - Diarrhoea [Unknown]
  - Sepsis [Unknown]
  - Haemorrhage [Unknown]
  - Contusion [Unknown]
  - Hepatitis [Unknown]
  - Arthralgia [Unknown]
  - Fatigue [Unknown]
  - Musculoskeletal pain [Unknown]
  - Rash [Unknown]
